FAERS Safety Report 7829171-1 (Version None)
Quarter: 2011Q4

REPORT INFORMATION
  Report Type: 
  Country: None (occurrence: None)
  Receive Date: 20111020
  Receipt Date: 20111018
  Transmission Date: 20120403
  Serious: Yes (Death, Other)
  Sender: FDA-Public Use
  Company Number: PHHY2011IN91745

PATIENT
  Age: 75 Year
  Sex: Male

DRUGS (3)
  1. ZOLEDRONOC ACID [Suspect]
     Dosage: 5 MG/ 100 ML
     Route: 042
     Dates: start: 20080401
  2. ZOLEDRONOC ACID [Suspect]
     Dosage: 5 MG/ 100 ML
     Route: 042
     Dates: start: 20090101
  3. ZOLEDRONOC ACID [Suspect]
     Dosage: 5 MG/ 100 ML
     Route: 042
     Dates: start: 20100701

REACTIONS (7)
  - INSOMNIA [None]
  - CARDIAC ARREST [None]
  - SEPSIS [None]
  - COMPRESSION FRACTURE [None]
  - LEFT VENTRICULAR FAILURE [None]
  - BACK PAIN [None]
  - LOWER RESPIRATORY TRACT INFECTION [None]
